FAERS Safety Report 7472149-0 (Version None)
Quarter: 2011Q2

REPORT INFORMATION
  Report Type: 
  Country: None (occurrence: None)
  Receive Date: 20110502
  Receipt Date: 20110301
  Transmission Date: 20111010
  Serious: Yes (Death)
  Sender: FDA-Public Use
  Company Number: 1000007846

PATIENT
  Age: 21 Year
  Sex: Female
  Weight: 114 kg

DRUGS (6)
  1. FLUANXOL (FLUPENTIXOL) (TABLETS) [Suspect]
     Dosage: 0.5 MG (0.5 MG, 1 IN 1 D), ORAL
     Route: 048
     Dates: start: 20090527
  2. MIANSERIN (MIANSERIN) [Suspect]
     Dosage: 10 MG (10 MG,1 IN 1 D)
     Dates: start: 20090301, end: 20090521
  3. NOVORAPID FLEXPEN (INSULIN ASPART) (SOLUTION ) (INSULIN ASPART) [Concomitant]
  4. NUVARING (NUVARING) (VAGINAL INSERT) (NUVARING) [Concomitant]
  5. METFORMIN HCL [Concomitant]
  6. ESCITALOPRAM [Suspect]
     Dosage: 5 MG (15 MG,1 IN 1 D)
     Dates: start: 20090527

REACTIONS (8)
  - BLOOD PRESSURE INCREASED [None]
  - BLOOD GLUCOSE INCREASED [None]
  - CHEST PAIN [None]
  - FALL [None]
  - CARDIAC FAILURE [None]
  - HEADACHE [None]
  - BLOOD SODIUM DECREASED [None]
  - GLYCOSYLATED HAEMOGLOBIN INCREASED [None]
